FAERS Safety Report 7583906-4 (Version None)
Quarter: 2011Q2

REPORT INFORMATION
  Report Type: 
  Country: None (occurrence: None)
  Receive Date: 20110628
  Receipt Date: 20110628
  Transmission Date: 20111010
  Serious: Yes (Disabling)
  Sender: FDA-Public Use
  Company Number: None

PATIENT
  Sex: Male
  Weight: 78.6 kg

DRUGS (1)
  1. RESTASIS [Suspect]
     Indication: DRY EYE
     Dosage: 1 DROP 2 X A DAY OPTHALMIC
     Route: 047
     Dates: start: 20100401, end: 20100901

REACTIONS (2)
  - ANOSMIA [None]
  - AGEUSIA [None]
